FAERS Safety Report 4497074-9 (Version None)
Quarter: 2004Q4

REPORT INFORMATION
  Report Type: 
  Country: None (occurrence: None)
  Receive Date: 20041110
  Receipt Date: 20041101
  Transmission Date: 20050328
  Serious: Yes (Other)
  Sender: FDA-Public Use
  Company Number: US-JNJFOC-20041100634

PATIENT
  Sex: Male
  Weight: 69.85 kg

DRUGS (4)
  1. REMICADE [Suspect]
     Route: 042
  2. PLAQUENIL [Concomitant]
  3. METHOTREXATE [Concomitant]
  4. SALICYLATE [Concomitant]

REACTIONS (4)
  - COUGH [None]
  - FLUSHING [None]
  - PYREXIA [None]
  - STAPHYLOCOCCAL INFECTION [None]
